FAERS Safety Report 7057690-7 (Version None)
Quarter: 2010Q4

REPORT INFORMATION
  Report Type: 
  Country: None (occurrence: None)
  Receive Date: 20101022
  Receipt Date: 20101011
  Transmission Date: 20110411
  Serious: Yes (Other)
  Sender: FDA-Public Use
  Company Number: US-ELI_LILLY_AND_COMPANY-US201010003481

PATIENT
  Sex: Male

DRUGS (2)
  1. HUMULIN 70/30 [Suspect]
     Indication: TYPE 1 DIABETES MELLITUS
     Dosage: 26 U, EACH MORNING
     Dates: start: 19980101
  2. HUMULIN 70/30 [Suspect]
     Dosage: 6 U, EACH EVENING

REACTIONS (2)
  - BLINDNESS [None]
  - HEARING IMPAIRED [None]
